FAERS Safety Report 24540038 (Version 1)
Quarter: 2024Q4

REPORT INFORMATION
  Report Type: Spontaneous
  Country: US (occurrence: None)
  Receive Date: 20241023
  Receipt Date: 20241023
  Transmission Date: 20250115
  Serious: Yes (Hospitalization)
  Sender: Public
  Company Number: None

PATIENT
  Sex: Male

DRUGS (3)
  1. FORTEO [Suspect]
     Active Substance: TERIPARATIDE
     Indication: Osteopetrosis
     Dosage: OTHER STRENGTH : 250 UG/ML;?FREQUENCY : DAILY;?
     Route: 058
     Dates: start: 202307
  2. FORTEO [Suspect]
     Active Substance: TERIPARATIDE
     Indication: Osteoporosis
  3. FORTEO [Suspect]
     Active Substance: TERIPARATIDE
     Indication: Pathological fracture

REACTIONS (2)
  - Fall [None]
  - Joint injury [None]
